FAERS Safety Report 9618499 (Version 10)
Quarter: 2015Q1

REPORT INFORMATION
  Report Type: Spontaneous
  Country: US (occurrence: US)
  Receive Date: 20131014
  Receipt Date: 20150320
  Transmission Date: 20150721
  Serious: Yes (Hospitalization, Other)
  Sender: FDA-Public Use
  Company Number: US-PFIZER INC-2013289220

PATIENT
  Age: 59 Year
  Sex: Female

DRUGS (5)
  1. XALKORI [Suspect]
     Active Substance: CRIZOTINIB
     Dosage: UNK
  2. XALKORI [Suspect]
     Active Substance: CRIZOTINIB
     Dosage: 250 MG, 2X/DAY
     Route: 048
  3. XALKORI [Suspect]
     Active Substance: CRIZOTINIB
     Dosage: 250 MG, 2X/DAY (TAKE ONE CAPSULE TWICE DAILY)
     Route: 048
  4. WARFARIN [Suspect]
     Active Substance: WARFARIN
     Indication: DEEP VEIN THROMBOSIS
     Dosage: UNK
  5. XALKORI [Suspect]
     Active Substance: CRIZOTINIB
     Indication: LUNG CARCINOMA CELL TYPE UNSPECIFIED STAGE IV
     Dosage: 250 MG, 2X/DAY (TAKE ONE CAPSULE EVERY 12 HOURS)
     Route: 048
     Dates: start: 201304

REACTIONS (14)
  - Disease progression [Unknown]
  - Lung carcinoma cell type unspecified stage IV [Unknown]
  - Skin discolouration [Unknown]
  - Renal impairment [Not Recovered/Not Resolved]
  - Nausea [Unknown]
  - Dyspnoea [Unknown]
  - Cerebral haemorrhage [Recovered/Resolved]
  - Blood potassium increased [Recovered/Resolved]
  - Thrombosis [Not Recovered/Not Resolved]
  - Mastoiditis [Recovered/Resolved]
  - Incision site infection [Recovered/Resolved]
  - Kidney infection [Unknown]
  - Diarrhoea [Not Recovered/Not Resolved]
  - Constipation [Unknown]
